FAERS Safety Report 17115886 (Version 2)
Quarter: 2019Q4

REPORT INFORMATION
  Report Type: Spontaneous
  Country: US (occurrence: US)
  Receive Date: 20191205
  Receipt Date: 20191218
  Transmission Date: 20200122
  Serious: No
  Sender: FDA-Public Use
  Company Number: US-PFIZER INC-2019520639

PATIENT
  Age: 47 Year
  Sex: Female

DRUGS (1)
  1. JUNIOR STRENGTH ADVIL [Suspect]
     Active Substance: IBUPROFEN
     Indication: ORAL DISCOMFORT
     Dosage: 100 MG, (ON TWO OCCASIONS)
     Route: 048

REACTIONS (4)
  - Hypoaesthesia oral [Unknown]
  - Pharyngeal hypoaesthesia [Recovered/Resolved]
  - Oesophageal pain [Unknown]
  - Throat irritation [Unknown]
